FAERS Safety Report 6793879-X (Version None)
Quarter: 2010Q2

REPORT INFORMATION
  Report Type: 
  Country: None (occurrence: None)
  Receive Date: 20100624
  Receipt Date: 20100212
  Transmission Date: 20101027
  Serious: Yes (Other)
  Sender: FDA-Public Use
  Company Number: US-MYLANLABS-2009S1021629

PATIENT
  Age: 65 Year
  Sex: Female

DRUGS (6)
  1. CLOZAPINE [Suspect]
     Dates: end: 20100210
  2. LOPID [Concomitant]
  3. ZANTAC [Concomitant]
  4. DEPAKOTE [Concomitant]
  5. PROZAC [Concomitant]
  6. ARICEPT [Concomitant]

REACTIONS (2)
  - GRANULOCYTOPENIA [None]
  - LEUKOPENIA [None]
